FAERS Safety Report 8584613-1 (Version None)
Quarter: 2012Q3

REPORT INFORMATION
  Report Type: 
  Country: None (occurrence: None)
  Receive Date: 20120810
  Receipt Date: 20120731
  Transmission Date: 20120928
  Serious: Yes (Hospitalization)
  Sender: FDA-Public Use
  Company Number: US-BAYER-2012-045849

PATIENT
  Age: 33 Year
  Sex: Female

DRUGS (11)
  1. AZITHROMYCIN [Concomitant]
     Dosage: 250 MG, DAILY
  2. NORCO [Concomitant]
     Dosage: 5/325 QID
  3. YAZ [Suspect]
  4. YASMIN [Suspect]
  5. TYLENOL W/ CODEINE [Concomitant]
  6. DULCOLAX [Concomitant]
  7. ZITHROMAX [Concomitant]
     Dosage: UNK
  8. ACETAMINOPHEN W/ CODEINE [Concomitant]
     Dosage: UNK
  9. SYNTHROID [Concomitant]
     Dosage: 100 MCG/24HR, UNK
  10. MOXIFLOXACIN [Concomitant]
  11. VITAMIN D [Concomitant]
     Dosage: UNK

REACTIONS (8)
  - PAIN [None]
  - ANXIETY [None]
  - INJURY [None]
  - ANHEDONIA [None]
  - PULMONARY EMBOLISM [None]
  - FEAR [None]
  - QUALITY OF LIFE DECREASED [None]
  - EMOTIONAL DISTRESS [None]
